FAERS Safety Report 6142032-1 (Version None)
Quarter: 2009Q1

REPORT INFORMATION
  Report Type: 
  Country: None (occurrence: None)
  Receive Date: 20090331
  Receipt Date: 20090331
  Transmission Date: 20090719
  Serious: Yes (Other)
  Sender: FDA-Public Use
  Company Number: None

PATIENT
  Sex: Female
  Weight: 11.7935 kg

DRUGS (6)
  1. ZYRTEC [Suspect]
     Indication: MULTIPLE ALLERGIES
     Dosage: 1/2 TSP ONCE DAILY PO 3 MONTHS/DAILY
     Route: 048
     Dates: start: 20081101, end: 20090101
  2. ZYRTEC [Suspect]
     Indication: RHINORRHOEA
     Dosage: 1/2 TSP ONCE DAILY PO 3 MONTHS/DAILY
     Route: 048
     Dates: start: 20081101, end: 20090101
  3. ZYRTEC [Suspect]
     Indication: SNEEZING
     Dosage: 1/2 TSP ONCE DAILY PO 3 MONTHS/DAILY
     Route: 048
     Dates: start: 20081101, end: 20090101
  4. ZYRTEC [Suspect]
     Indication: MULTIPLE ALLERGIES
     Dosage: 1/2 TSP ONCE DAILY PO 3 MONTHS/DAILY
     Route: 048
     Dates: start: 20090326, end: 20090327
  5. ZYRTEC [Suspect]
     Indication: RHINORRHOEA
     Dosage: 1/2 TSP ONCE DAILY PO 3 MONTHS/DAILY
     Route: 048
     Dates: start: 20090326, end: 20090327
  6. ZYRTEC [Suspect]
     Indication: SNEEZING
     Dosage: 1/2 TSP ONCE DAILY PO 3 MONTHS/DAILY
     Route: 048
     Dates: start: 20090326, end: 20090327

REACTIONS (5)
  - ABNORMAL BEHAVIOUR [None]
  - AGGRESSION [None]
  - AGITATION [None]
  - CRYING [None]
  - SELF INJURIOUS BEHAVIOUR [None]
